FAERS Safety Report 6851153-7 (Version None)
Quarter: 2010Q3

REPORT INFORMATION
  Report Type: 
  Country: None (occurrence: None)
  Receive Date: 20100716
  Receipt Date: 20080122
  Transmission Date: 20110219
  Serious: No
  Sender: FDA-Public Use
  Company Number: US-PFIZER INC-2007091668

PATIENT
  Sex: Female
  Weight: 45.4 kg

DRUGS (10)
  1. CHANTIX [Suspect]
     Indication: SMOKING CESSATION THERAPY
     Route: 048
     Dates: start: 20070829
  2. ROBAXIN [Concomitant]
  3. PROMETHAZINE [Concomitant]
  4. XANAX [Concomitant]
  5. IMURAN [Concomitant]
  6. ATROVENT [Concomitant]
  7. ALBUTEROL [Concomitant]
  8. BACLOFEN [Concomitant]
  9. HYDROCODONE [Concomitant]
  10. PRILOSEC [Concomitant]

REACTIONS (11)
  - ABNORMAL DREAMS [None]
  - AGITATION [None]
  - ANGER [None]
  - ANXIETY [None]
  - DRUG INEFFECTIVE [None]
  - DRY MOUTH [None]
  - IRRITABILITY [None]
  - NAUSEA [None]
  - NERVOUSNESS [None]
  - TINNITUS [None]
  - VOMITING [None]
